FAERS Safety Report 17413841 (Version 1)
Quarter: 2020Q1

REPORT INFORMATION
  Report Type: Spontaneous
  Country: US (occurrence: US)
  Receive Date: 20200213
  Receipt Date: 20200213
  Transmission Date: 20200409
  Serious: Yes (Hospitalization)
  Sender: FDA-Public Use
  Company Number: US-ASTRAZENECA-2019SE72545

PATIENT
  Age: 55 Year
  Sex: Female

DRUGS (8)
  1. MULTIVITAMIN [Concomitant]
     Active Substance: VITAMINS
     Dosage: ONCE DAILY
  2. ATORVASTATIN [Concomitant]
     Active Substance: ATORVASTATIN
  3. ONDANSETRON [Concomitant]
     Active Substance: ONDANSETRON
     Indication: NAUSEA
     Dosage: 4.0MG AS REQUIRED
     Route: 048
  4. DAPAGLIFLOZIN/METFORMIN XR [Suspect]
     Active Substance: DAPAGLIFLOZIN PROPANEDIOL\METFORMIN HYDROCHLORIDE
     Dosage: 10/2000 MG ONCE DAILY (DURATION UNKNOWN),
     Route: 048
  5. ENTERIC-COATED ASPIRIN [Concomitant]
     Active Substance: ASPIRIN
  6. ALOGLIPTIN. [Concomitant]
     Active Substance: ALOGLIPTIN
  7. PIPERACILLIN/TAZOBACTAM [Concomitant]
     Active Substance: PIPERACILLIN SODIUM\TAZOBACTAM SODIUM
     Indication: ESCHERICHIA INFECTION
  8. LEVOTHYROXINE. [Concomitant]
     Active Substance: LEVOTHYROXINE

REACTIONS (1)
  - Euglycaemic diabetic ketoacidosis [Recovered/Resolved]
